FAERS Safety Report 20119316 (Version 4)
Quarter: 2021Q4

REPORT INFORMATION
  Report Type: Spontaneous
  Country: US (occurrence: None)
  Receive Date: 20211126
  Receipt Date: 20211223
  Transmission Date: 20220304
  Serious: Yes (Death)
  Sender: FDA-Public Use
  Company Number: 2021A824377

PATIENT
  Age: 22613 Day
  Sex: Female

DRUGS (4)
  1. TAGRISSO [Suspect]
     Active Substance: OSIMERTINIB
     Indication: EGFR gene mutation
     Route: 048
     Dates: start: 20210601
  2. TAGRISSO [Suspect]
     Active Substance: OSIMERTINIB
     Indication: Non-small cell lung cancer
     Route: 048
     Dates: start: 20210601
  3. ELIQUIS [Concomitant]
     Active Substance: APIXABAN
  4. APIXABAN [Concomitant]
     Active Substance: APIXABAN

REACTIONS (4)
  - Thrombocytopenia [Fatal]
  - Arterial haemorrhage [Fatal]
  - Cerebrovascular accident [Fatal]
  - Cerebral artery thrombosis [Fatal]

NARRATIVE: CASE EVENT DATE: 20211027
